FAERS Safety Report 7379048-3 (Version None)
Quarter: 2011Q1

REPORT INFORMATION
  Report Type: 
  Country: None (occurrence: None)
  Receive Date: 20110328
  Receipt Date: 20110325
  Transmission Date: 20110831
  Serious: Yes (Death)
  Sender: FDA-Public Use
  Company Number: ZA-ROCHE-767575

PATIENT
  Sex: Female
  Weight: 63 kg

DRUGS (5)
  1. CAPECITABINE [Suspect]
     Indication: BREAST CANCER
     Dosage: CYCLICAL
     Route: 048
     Dates: start: 20110201, end: 20110222
  2. PARACETAMOL [Concomitant]
     Dates: start: 20110110
  3. VINFLUNINE [Suspect]
     Indication: BREAST CANCER
     Dosage: CYCLICAL
     Route: 042
     Dates: start: 20110201, end: 20110222
  4. TRAMADOL [Concomitant]
     Dates: start: 20110110
  5. MYCOSTATIN [Concomitant]
     Dates: start: 20101024

REACTIONS (2)
  - GENERAL PHYSICAL HEALTH DETERIORATION [None]
  - SUDDEN DEATH [None]
